FAERS Safety Report 15133881 (Version 1)
Quarter: 2018Q3

REPORT INFORMATION
  Report Type: Report from Study
  Country: ES (occurrence: ES)
  Receive Date: 20180712
  Receipt Date: 20180712
  Transmission Date: 20181010
  Serious: Yes (Hospitalization)
  Sender: FDA-Public Use
  Company Number: ES-TEVA-2018-ES-924085

PATIENT
  Age: 86 Year
  Sex: Male

DRUGS (7)
  1. ATROVENT [Suspect]
     Active Substance: IPRATROPIUM BROMIDE
     Dosage: 2?2??2?2
     Route: 055
     Dates: start: 20161228
  2. DISTRANEURINE CAPSULAS, 30 [Suspect]
     Active Substance: CLOMETHIAZOLE EDISYLATE
     Dosage: 0?0?2
     Route: 048
     Dates: start: 20161228
  3. QUETIAPINE FUMARATE. [Suspect]
     Active Substance: QUETIAPINE FUMARATE
     Dosage: 0?0?1
     Route: 048
     Dates: start: 20161228
  4. GLUCOSAMINA (1666A) [Concomitant]
     Dosage: 0?1?0
     Route: 048
     Dates: start: 20161228
  5. TRADONAL RETARD 150 MG CAPSULAS DURAS DE LIBERACION PROLONGADA, 60 C?P [Suspect]
     Active Substance: TRAMADOL HYDROCHLORIDE
     Dosage: 0?0?1
     Route: 048
     Dates: start: 20161228
  6. FUROSEMIDA (1615A) [Suspect]
     Active Substance: FUROSEMIDE
     Dosage: , 1?1?0
     Route: 048
     Dates: start: 20161228
  7. EUTIROX 50 MICROGRAMOS COMPRIMIDOS , 100 COMPRIMIDOS [Concomitant]
     Active Substance: LEVOTHYROXINE SODIUM
     Dosage: 1 CP DIA
     Route: 048
     Dates: start: 20030101

REACTIONS (2)
  - Intestinal pseudo-obstruction [Recovered/Resolved]
  - Hypokalaemia [Recovered/Resolved]

NARRATIVE: CASE EVENT DATE: 20170901
